FAERS Safety Report 7817417-5 (Version None)
Quarter: 2011Q4

REPORT INFORMATION
  Report Type: 
  Country: None (occurrence: None)
  Receive Date: 20111017
  Receipt Date: 20111004
  Transmission Date: 20120403
  Serious: Yes (Death)
  Sender: FDA-Public Use
  Company Number: JP-ROCHE-1002775

PATIENT
  Sex: Female
  Weight: 54 kg

DRUGS (13)
  1. PREDNISOLONE [Concomitant]
     Indication: RHEUMATOID ARTHRITIS
     Route: 048
  2. LUVOX [Concomitant]
     Route: 048
     Dates: start: 20090101
  3. ACTEMRA [Suspect]
     Route: 041
     Dates: start: 20090408, end: 20090520
  4. RIMATIL [Concomitant]
     Indication: RHEUMATOID ARTHRITIS
     Route: 048
     Dates: end: 20081104
  5. EVISTA [Concomitant]
     Indication: OSTEOPOROSIS
     Route: 048
  6. ACTEMRA [Suspect]
     Route: 041
     Dates: start: 20090204, end: 20090304
  7. LANSOPRAZOLE [Concomitant]
     Indication: PROPHYLAXIS
     Route: 048
  8. NAPAGELN [Concomitant]
     Dosage: 2-3 TIMES/DAY
     Route: 061
     Dates: start: 20090601
  9. ACTEMRA [Suspect]
     Indication: RHEUMATOID ARTHRITIS
     Route: 041
     Dates: start: 20080910, end: 20090107
  10. MEXITIL [Concomitant]
     Route: 048
     Dates: start: 20090501, end: 20090601
  11. MEXITIL [Concomitant]
     Route: 048
     Dates: start: 20090601
  12. MOHRUS TAPE [Concomitant]
     Dosage: PROPERLY
     Route: 061
     Dates: start: 20090401
  13. NEUROTROPIN [Concomitant]
     Route: 048
     Dates: start: 20090101

REACTIONS (1)
  - SMALL CELL LUNG CANCER STAGE UNSPECIFIED [None]
